FAERS Safety Report 4493943-4 (Version None)
Quarter: 2004Q4

REPORT INFORMATION
  Report Type: 
  Country: None (occurrence: None)
  Receive Date: 20041102
  Receipt Date: 20041102
  Transmission Date: 20050328
  Serious: Yes (Hospitalization)
  Sender: FDA-Public Use
  Company Number: None

PATIENT
  Age: 59 Year
  Sex: Male
  Weight: 69 kg

DRUGS (1)
  1. PHENYTOIN [Suspect]
     Indication: CONVULSION
     Dosage: 1 TSP TID ORAL
     Route: 048
     Dates: start: 20040506, end: 20041101

REACTIONS (3)
  - DRUG TOXICITY [None]
  - MENTAL IMPAIRMENT [None]
  - SINUS BRADYCARDIA [None]
